FAERS Safety Report 13406628 (Version 1)
Quarter: 2017Q2

REPORT INFORMATION
  Report Type: Spontaneous
  Country: US (occurrence: US)
  Receive Date: 20170405
  Receipt Date: 20170405
  Transmission Date: 20170830
  Serious: No
  Sender: FDA-Public Use
  Company Number: US-SA-2016SA227227

PATIENT
  Age: 38 Year
  Sex: Male

DRUGS (1)
  1. ALLEGRA [Suspect]
     Active Substance: FEXOFENADINE HYDROCHLORIDE
     Indication: SEASONAL ALLERGY
     Dosage: USING PRODUCT FOR 15-16 YEAR.USUALLY  PATIENT TOOK THE DRUG ONCE A DAY SOMETIMES TWICE A DAY.
     Route: 065

REACTIONS (3)
  - Rhinorrhoea [Unknown]
  - Intentional product misuse [Unknown]
  - Insomnia [Unknown]
